FAERS Safety Report 15465742 (Version 1)
Quarter: 2018Q4

REPORT INFORMATION
  Report Type: Spontaneous
  Country: US (occurrence: US)
  Receive Date: 20181004
  Receipt Date: 20181004
  Transmission Date: 20190204
  Serious: No
  Sender: FDA-Public Use
  Company Number: US-EPIC PHARMA LLC-2017EPC02070

PATIENT
  Age: 41 Year
  Sex: Female

DRUGS (1)
  1. AMLODIPINE [Suspect]
     Active Substance: AMLODIPINE BESYLATE
     Dosage: 10 MG, 1X/DAY
     Route: 048

REACTIONS (2)
  - Foreign body in respiratory tract [Recovered/Resolved]
  - Anxiety [Recovered/Resolved]
